FAERS Safety Report 9516077 (Version 2)
Quarter: 2013Q4

REPORT INFORMATION
  Report Type: Spontaneous
  Country: US (occurrence: US)
  Receive Date: 20130911
  Receipt Date: 20131028
  Transmission Date: 20140711
  Serious: No
  Sender: FDA-Public Use
  Company Number: US-009507513-1309USA004233

PATIENT
  Age: 86 Year
  Sex: Female
  Weight: 65.76 kg

DRUGS (8)
  1. CLARITIN [Suspect]
     Indication: HYPERSENSITIVITY
     Dosage: UNK, UNKNOWN
     Route: 048
     Dates: start: 201309
  2. CLARITIN [Suspect]
     Indication: SNEEZING
     Dosage: UNK
     Route: 048
     Dates: start: 20130815, end: 20130819
  3. CLARITIN [Suspect]
     Indication: NASAL DISCOMFORT
  4. CLARITIN [Suspect]
     Indication: EYE PRURITUS
  5. CLARITIN [Suspect]
     Indication: LACRIMATION INCREASED
  6. CLARITIN [Suspect]
     Indication: RHINORRHOEA
  7. CLARITIN [Suspect]
     Indication: THROAT IRRITATION
  8. BYSTOLIC [Concomitant]
     Indication: HYPERTENSION
     Dosage: 5 MG, UNKNOWN

REACTIONS (3)
  - Somnolence [Unknown]
  - Drug ineffective [Unknown]
  - Overdose [Unknown]
